FAERS Safety Report 6096131-3 (Version None)
Quarter: 2009Q1

REPORT INFORMATION
  Report Type: 
  Country: None (occurrence: None)
  Receive Date: 20090227
  Receipt Date: 20080911
  Transmission Date: 20090719
  Serious: No
  Sender: FDA-Public Use
  Company Number: A0747060A

PATIENT
  Age: 39 Year
  Sex: Female

DRUGS (5)
  1. LAMICTAL [Suspect]
     Indication: BIPOLAR DISORDER
     Route: 048
     Dates: end: 20070101
  2. WELLBUTRIN XL [Suspect]
     Dosage: 300MG PER DAY
     Route: 048
     Dates: start: 20080101
  3. WELLBUTRIN XL [Suspect]
     Dosage: 300MG PER DAY
     Route: 048
     Dates: start: 20070101, end: 20080101
  4. SEROQUEL [Concomitant]
  5. CLONAZEPAM [Concomitant]

REACTIONS (6)
  - AGITATION [None]
  - ANGER [None]
  - ANXIETY [None]
  - LOSS OF EMPLOYMENT [None]
  - MUSCLE TWITCHING [None]
  - RASH [None]
